FAERS Safety Report 5639456-5 (Version None)
Quarter: 2008Q1

REPORT INFORMATION
  Report Type: 
  Country: None (occurrence: None)
  Receive Date: 20080226
  Receipt Date: 20080214
  Transmission Date: 20080703
  Serious: Yes (Other)
  Sender: FDA-Public Use
  Company Number: BR-PFIZER INC-2008014709

PATIENT
  Sex: Male
  Weight: 68 kg

DRUGS (2)
  1. CARDURAN XL [Suspect]
     Route: 048
  2. SPIRIVA [Concomitant]
     Route: 055

REACTIONS (12)
  - ASTHENIA [None]
  - COUGH [None]
  - DRY MOUTH [None]
  - EJACULATION DISORDER [None]
  - ERECTILE DYSFUNCTION [None]
  - FATIGUE [None]
  - FLATULENCE [None]
  - INTESTINAL HAEMORRHAGE [None]
  - LIBIDO DECREASED [None]
  - MALAISE [None]
  - NAUSEA [None]
  - SOMNOLENCE [None]
